FAERS Safety Report 18979388 (Version 1)
Quarter: 2021Q1

REPORT INFORMATION
  Report Type: Spontaneous
  Country: US (occurrence: US)
  Receive Date: 20210308
  Receipt Date: 20210308
  Transmission Date: 20210420
  Serious: Yes (Other)
  Sender: FDA-Public Use
  Company Number: US-AUROBINDO-AUR-APL-2019-050012

PATIENT
  Sex: Female

DRUGS (5)
  1. RITUXIMAB. [Suspect]
     Active Substance: RITUXIMAB
     Indication: NON-HODGKIN^S LYMPHOMA
     Dosage: 250 MILLIGRAM/SQ. METER
     Route: 042
     Dates: start: 200508, end: 200508
  2. YTTRIUM. [Suspect]
     Active Substance: YTTRIUM
     Indication: NON-HODGKIN^S LYMPHOMA
     Dosage: UNK UNK, ONCE A DAY
     Route: 065
     Dates: start: 200508, end: 200508
  3. ZEVALIN [Suspect]
     Active Substance: IBRITUMOMAB TIUXETAN
     Indication: NON-HODGKIN^S LYMPHOMA
     Dosage: UNK UNK, ONCE A DAY
     Route: 042
     Dates: start: 200508, end: 200508
  4. ZEVALIN [Suspect]
     Active Substance: IBRITUMOMAB TIUXETAN
     Dosage: UNK UNK, ONCE A DAY
     Route: 042
     Dates: start: 200508, end: 200508
  5. INDIUM (111 IN) [Suspect]
     Active Substance: INDIUM IN-111
     Indication: NON-HODGKIN^S LYMPHOMA
     Dosage: UNK UNK, ONCE A DAY
     Route: 065
     Dates: start: 200508, end: 200508

REACTIONS (1)
  - Aplastic anaemia [Not Recovered/Not Resolved]

NARRATIVE: CASE EVENT DATE: 20060111
